FAERS Safety Report 7867761-0 (Version None)
Quarter: 2011Q4

REPORT INFORMATION
  Report Type: 
  Country: None (occurrence: None)
  Receive Date: 20111028
  Receipt Date: 20111021
  Transmission Date: 20120403
  Serious: Yes (Other)
  Sender: FDA-Public Use
  Company Number: US-ABBOTT-11P-163-0868107-00

PATIENT
  Age: 44 Year
  Sex: Male

DRUGS (5)
  1. LISINOPRIL [Concomitant]
     Indication: HYPERTENSION
     Dates: start: 20050101
  2. LEXAPRO [Concomitant]
     Indication: ANXIETY
     Dates: start: 20040101
  3. HUMIRA [Suspect]
     Indication: PSORIASIS
     Dates: start: 20090601, end: 20110101
  4. HUMIRA [Suspect]
     Dates: start: 20110801, end: 20111007
  5. FOLIC ACID [Concomitant]
     Indication: PRODUCT USED FOR UNKNOWN INDICATION

REACTIONS (3)
  - HEPATIC ENZYME INCREASED [None]
  - FATTY LIVER ALCOHOLIC [None]
  - BACK PAIN [None]
